FAERS Safety Report 19069598 (Version 2)
Quarter: 2021Q2

REPORT INFORMATION
  Report Type: Spontaneous
  Country: US (occurrence: US)
  Receive Date: 20210329
  Receipt Date: 20210428
  Transmission Date: 20210717
  Serious: Yes (Hospitalization)
  Sender: FDA-Public Use
  Company Number: US-ELI_LILLY_AND_COMPANY-US202103008419

PATIENT
  Age: 78 Year
  Sex: Male

DRUGS (1)
  1. BAMLANIVIMAB 700MG [Suspect]
     Active Substance: BAMLANIVIMAB
     Indication: COVID-19
     Dosage: 700 MG, SINGLE
     Route: 042
     Dates: start: 20210316, end: 20210316

REACTIONS (5)
  - Tremor [Unknown]
  - Hyperhidrosis [Not Recovered/Not Resolved]
  - Dyspnoea [Unknown]
  - Pyrexia [Unknown]
  - Chills [Unknown]

NARRATIVE: CASE EVENT DATE: 20210317
